FAERS Safety Report 18762830 (Version 5)
Quarter: 2022Q1

REPORT INFORMATION
  Report Type: Report from Study
  Country: US (occurrence: US)
  Receive Date: 20210120
  Receipt Date: 20220308
  Transmission Date: 20220423
  Serious: Yes (Other)
  Sender: FDA-Public Use
  Company Number: US-TAKEDA-US202003872

PATIENT
  Age: 57 Year
  Sex: Female

DRUGS (4)
  1. HUMAN IMMUNOGLOBULIN G [Suspect]
     Active Substance: HUMAN IMMUNOGLOBULIN G
     Indication: Primary immunodeficiency syndrome
     Dosage: 38 GRAM, 1X/2WKS
     Route: 065
  2. HUMAN IMMUNOGLOBULIN G [Suspect]
     Active Substance: HUMAN IMMUNOGLOBULIN G
     Dosage: UNK
     Route: 065
     Dates: start: 20200124
  3. HUMAN IMMUNOGLOBULIN G [Suspect]
     Active Substance: HUMAN IMMUNOGLOBULIN G
     Dosage: 36 GRAM, Q2WEEKS
     Route: 065
  4. ADVAIR HFA [Suspect]
     Active Substance: FLUTICASONE PROPIONATE\SALMETEROL XINAFOATE
     Indication: Product used for unknown indication
     Route: 065

REACTIONS (24)
  - Pneumonia [Unknown]
  - Nephrolithiasis [Unknown]
  - Illness [Unknown]
  - Lacrimation increased [Unknown]
  - Dehydration [Unknown]
  - Eye swelling [Unknown]
  - Oropharyngeal pain [Unknown]
  - Infusion site extravasation [Unknown]
  - Swelling [Unknown]
  - Aphthous ulcer [Unknown]
  - Oral herpes [Unknown]
  - Bronchitis [Unknown]
  - Laryngitis [Unknown]
  - Oral fungal infection [Unknown]
  - Multiple allergies [Unknown]
  - Rash [Unknown]
  - Infusion site erythema [Unknown]
  - Infusion site pain [Unknown]
  - Pyrexia [Unknown]
  - Cough [Recovered/Resolved]
  - Headache [Unknown]
  - Product dose omission issue [Unknown]
  - Device kink [Unknown]
  - Inability to afford medication [Unknown]

NARRATIVE: CASE EVENT DATE: 20200429
